FAERS Safety Report 20840294 (Version 3)
Quarter: 2022Q3

REPORT INFORMATION
  Report Type: Spontaneous
  Country: AU (occurrence: AU)
  Receive Date: 20220517
  Receipt Date: 20220720
  Transmission Date: 20221026
  Serious: Yes (Other)
  Sender: FDA-Public Use
  Company Number: AU-TASMAN PHARMA, INC.-2022TSM00075

PATIENT
  Sex: Female

DRUGS (11)
  1. CLOZAPINE [Suspect]
     Active Substance: CLOZAPINE
     Dosage: 600 MG
     Dates: start: 20220307, end: 20220330
  2. CLOZAPINE [Suspect]
     Active Substance: CLOZAPINE
     Dosage: 600 MG
     Dates: start: 20220331, end: 20220406
  3. CLOZAPINE [Suspect]
     Active Substance: CLOZAPINE
     Dosage: 600 MG
     Dates: start: 20220407, end: 20220413
  4. CLOZAPINE [Suspect]
     Active Substance: CLOZAPINE
     Dosage: 400 MG
     Dates: start: 20220516, end: 20220525
  5. CLOZAPINE [Suspect]
     Active Substance: CLOZAPINE
     Dosage: 650 MG
     Dates: start: 20220414, end: 20220502
  6. CLOZAPINE [Suspect]
     Active Substance: CLOZAPINE
     Dosage: 100 MG
     Dates: start: 20220503, end: 20220508
  7. CLOZAPINE [Suspect]
     Active Substance: CLOZAPINE
     Dosage: 250 MG
     Dates: start: 20220509, end: 20220515
  8. CLOZAPINE [Suspect]
     Active Substance: CLOZAPINE
     Dosage: 400 MG
     Dates: start: 20220526, end: 20220610
  9. CLOZAPINE [Suspect]
     Active Substance: CLOZAPINE
     Dosage: UNK
     Dates: start: 20220614, end: 20220614
  10. CLOZAPINE [Suspect]
     Active Substance: CLOZAPINE
     Dosage: 100 MG
     Dates: start: 20220615, end: 20220628
  11. CLOZAPINE [Suspect]
     Active Substance: CLOZAPINE
     Dosage: 400 MG
     Dates: start: 20220629

REACTIONS (5)
  - Hallucination, auditory [Not Recovered/Not Resolved]
  - Treatment noncompliance [Recovered/Resolved]
  - Neutrophil count decreased [Not Recovered/Not Resolved]
  - Unevaluable event [Not Recovered/Not Resolved]
  - Product dose omission issue [Recovered/Resolved]

NARRATIVE: CASE EVENT DATE: 20220101
